FAERS Safety Report 26024007 (Version 1)
Quarter: 2025Q4

REPORT INFORMATION
  Report Type: Spontaneous
  Country: CN (occurrence: CN)
  Receive Date: 20251111
  Receipt Date: 20251111
  Transmission Date: 20260117
  Serious: Yes (Hospitalization, Other)
  Sender: SANOFI AVENTIS
  Company Number: CN-SA-2025SA330428

PATIENT
  Age: 81 Year
  Sex: Male

DRUGS (1)
  1. ENOXAPARIN SODIUM [Suspect]
     Active Substance: ENOXAPARIN SODIUM
     Indication: Anticoagulant therapy
     Dosage: 1 VIAL, QD
     Route: 058
     Dates: start: 20250928, end: 20251013

REACTIONS (2)
  - Prothrombin time abnormal [Unknown]
  - Melaena [Unknown]

NARRATIVE: CASE EVENT DATE: 20251013
